FAERS Safety Report 25182875 (Version 2)
Quarter: 2025Q4

REPORT INFORMATION
  Report Type: Spontaneous
  Country: US (occurrence: US)
  Receive Date: 20250410
  Receipt Date: 20251205
  Transmission Date: 20260117
  Serious: Yes (Hospitalization, Other)
  Sender: IPCA
  Company Number: US-IPCA LABORATORIES LIMITED-IPC-2025-US-000864

PATIENT

DRUGS (3)
  1. METFORMIN [Suspect]
     Active Substance: METFORMIN HYDROCHLORIDE
     Indication: Product used for unknown indication
     Dosage: 72.5 GRAM
     Route: 048
  2. METFORMIN [Suspect]
     Active Substance: METFORMIN HYDROCHLORIDE
     Dosage: 145 DOSAGE FORM (145 TABLET OF 500 MILLIGRAM)
     Route: 048
  3. HERBALS\TETRAHYDROCANNABINOL UNSPECIFIED [Suspect]
     Active Substance: HERBALS\TETRAHYDROCANNABINOL UNSPECIFIED
     Indication: Product used for unknown indication
     Dosage: UNK
     Route: 065

REACTIONS (6)
  - Hypothermia [Recovering/Resolving]
  - Hypoglycaemia [Recovering/Resolving]
  - Mental status changes [Recovering/Resolving]
  - Electrocardiogram QT prolonged [Recovering/Resolving]
  - Blood lactic acid increased [Recovering/Resolving]
  - Intentional overdose [Unknown]
